FAERS Safety Report 12326480 (Version 1)
Quarter: 2016Q2

REPORT INFORMATION
  Report Type: Spontaneous
  Country: US (occurrence: None)
  Receive Date: 20160502
  Receipt Date: 20160502
  Transmission Date: 20160815
  Serious: No
  Sender: FDA-Public Use
  Company Number: None

PATIENT
  Age: 0 Day
  Sex: Female
  Weight: 1.4 kg

DRUGS (1)
  1. INFASURF [Suspect]
     Active Substance: CALFACTANT
     Indication: PREMATURE BABY
     Route: 007
     Dates: start: 20160429, end: 20160429

REACTIONS (1)
  - Endotracheal intubation complication [None]

NARRATIVE: CASE EVENT DATE: 20160429
